FAERS Safety Report 20786204 (Version 2)
Quarter: 2023Q2

REPORT INFORMATION
  Report Type: Spontaneous
  Country: US (occurrence: None)
  Receive Date: 20220504
  Receipt Date: 20230511
  Transmission Date: 20230722
  Serious: No
  Sender: FDA-Public Use
  Company Number: US-ROCHE-2979383

PATIENT
  Age: 58 Year
  Sex: Female
  Weight: 56.750 kg

DRUGS (3)
  1. OCREVUS [Suspect]
     Active Substance: OCRELIZUMAB
     Indication: Multiple sclerosis
     Dosage: 600 MG EVERY 6 MONTHS INTRAVENOUS
     Route: 042
     Dates: start: 202007
  2. OCREVUS [Suspect]
     Active Substance: OCRELIZUMAB
     Indication: Chronic inflammatory demyelinating polyradiculoneuropathy
  3. HIZENTRA [Concomitant]
     Active Substance: HUMAN IMMUNOGLOBULIN G
     Route: 065

REACTIONS (1)
  - Weight decreased [Unknown]

NARRATIVE: CASE EVENT DATE: 20220101
